FAERS Safety Report 14627707 (Version 1)
Quarter: 2018Q1

REPORT INFORMATION
  Report Type: Spontaneous
  Country: TR (occurrence: TR)
  Receive Date: 20180312
  Receipt Date: 20180312
  Transmission Date: 20180509
  Serious: Yes (Other)
  Sender: FDA-Public Use
  Company Number: PHHY2018TR040467

PATIENT
  Sex: Male

DRUGS (3)
  1. ONEPTUS [Suspect]
     Active Substance: SACUBITRIL\VALSARTAN
     Dosage: 97 MG, BID
     Route: 065
  2. ONEPTUS [Suspect]
     Active Substance: SACUBITRIL\VALSARTAN
     Indication: PRODUCT USED FOR UNKNOWN INDICATION
     Dosage: 24 MG, BID
     Route: 065
  3. ONEPTUS [Suspect]
     Active Substance: SACUBITRIL\VALSARTAN
     Dosage: 49 MG, BID
     Route: 065

REACTIONS (1)
  - Arrhythmia [Unknown]
